FAERS Safety Report 4407594-0 (Version None)
Quarter: 2004Q3

REPORT INFORMATION
  Report Type: 
  Country: None (occurrence: None)
  Receive Date: 20040726
  Receipt Date: 20040618
  Transmission Date: 20050211
  Serious: Yes (Hospitalization)
  Sender: FDA-Public Use
  Company Number: JP-ROCHE-371710

PATIENT
  Age: 66 Year
  Sex: Female
  Weight: 53 kg

DRUGS (9)
  1. PEGASYS [Suspect]
     Indication: HEPATITIS C
     Route: 058
     Dates: start: 20040416, end: 20040528
  2. NORVASC [Concomitant]
     Route: 048
     Dates: start: 20031020
  3. URSO [Concomitant]
     Dosage: THERAPY WAS STOPPED ON 15 APRIL 2004 AND RESTARTED ON 11 JUNE 2004.
     Route: 048
     Dates: start: 20030602, end: 20040611
  4. GLYCYRON [Concomitant]
     Route: 048
     Dates: start: 20030702, end: 20040415
  5. MOBIC [Concomitant]
     Route: 048
     Dates: start: 20040528, end: 20040615
  6. SELBEX [Concomitant]
     Route: 048
     Dates: start: 20040528, end: 20040615
  7. VOLTAREN [Concomitant]
     Route: 048
     Dates: start: 20040615
  8. BIOFERMIN [Concomitant]
     Route: 048
     Dates: start: 20040615
  9. LEVOFLOXACIN [Concomitant]
     Route: 048
     Dates: start: 20040622

REACTIONS (13)
  - ASCITES [None]
  - ASTHENIA [None]
  - DEHYDRATION [None]
  - DEPRESSION [None]
  - DISSEMINATED INTRAVASCULAR COAGULATION [None]
  - DYSPNOEA EXACERBATED [None]
  - FACE OEDEMA [None]
  - HEPATIC FAILURE [None]
  - HYPONATRAEMIA [None]
  - MALAISE [None]
  - OEDEMA PERIPHERAL [None]
  - PLATELET COUNT DECREASED [None]
  - RENAL IMPAIRMENT [None]
